FAERS Safety Report 11457086 (Version 1)
Quarter: 2015Q3

REPORT INFORMATION
  Report Type: Spontaneous
  Country: US (occurrence: US)
  Receive Date: 20150904
  Receipt Date: 20150904
  Transmission Date: 20151125
  Serious: Yes (Hospitalization, Other)
  Sender: FDA-Public Use
  Company Number: US-ABBVIE-15K-163-1453928-00

PATIENT
  Sex: Female
  Weight: 68.1 kg

DRUGS (12)
  1. LEXAPRO [Concomitant]
     Active Substance: ESCITALOPRAM OXALATE
     Indication: FIBROMYALGIA
  2. LEXAPRO [Concomitant]
     Active Substance: ESCITALOPRAM OXALATE
     Indication: ANXIETY
  3. ZYRTEC [Concomitant]
     Active Substance: CETIRIZINE HYDROCHLORIDE
     Indication: HYPERSENSITIVITY
  4. KLONOPIN [Concomitant]
     Active Substance: CLONAZEPAM
     Indication: SLEEP DISORDER THERAPY
  5. PROTONIX [Concomitant]
     Active Substance: PANTOPRAZOLE SODIUM
     Indication: GASTROOESOPHAGEAL REFLUX DISEASE
  6. LYRICA [Concomitant]
     Active Substance: PREGABALIN
     Indication: FIBROMYALGIA
  7. HYDROCODONE [Concomitant]
     Active Substance: HYDROCODONE
     Indication: PAIN
  8. HYOSCYAMINE. [Concomitant]
     Active Substance: HYOSCYAMINE
     Indication: ABDOMINAL PAIN
  9. HUMIRA [Suspect]
     Active Substance: ADALIMUMAB
     Indication: ANKYLOSING SPONDYLITIS
     Route: 058
  10. WELLBUTRIN [Concomitant]
     Active Substance: BUPROPION HYDROCHLORIDE
     Indication: SLEEP DISORDER
  11. KLONOPIN [Concomitant]
     Active Substance: CLONAZEPAM
     Indication: ANXIETY
  12. MELOXICAM. [Concomitant]
     Active Substance: MELOXICAM
     Indication: PAIN

REACTIONS (6)
  - Upper respiratory tract infection [Recovered/Resolved]
  - Dyspepsia [Recovering/Resolving]
  - Pancreatitis [Recovered/Resolved]
  - Nausea [Recovered/Resolved]
  - Constipation [Recovering/Resolving]
  - Weight decreased [Recovering/Resolving]

NARRATIVE: CASE EVENT DATE: 2012
